FAERS Safety Report 8860968 (Version 1)
Quarter: 2012Q4

REPORT INFORMATION
  Report Type: Spontaneous
  Country: DK (occurrence: None)
  Receive Date: 20121023
  Receipt Date: 20121023
  Transmission Date: 20130627
  Serious: Yes (Hospitalization)
  Sender: FDA-Public Use
  Company Number: 2012MA012524

PATIENT
  Age: 31 Year
  Sex: Male

DRUGS (4)
  1. SERTRALINE HYDROCHLORIDE [Suspect]
     Indication: DRUG USE FOR UNKNOWN INDICATION
     Route: 048
     Dates: start: 2012, end: 20120724
  2. ATRIPLA [Suspect]
     Indication: HIV INFECTION
     Route: 048
     Dates: start: 20110411, end: 20120724
  3. TEMESTA [Concomitant]
  4. IZONIAZID [Concomitant]

REACTIONS (6)
  - Hallucination [None]
  - Cognitive disorder [None]
  - Memory impairment [None]
  - Disorientation [None]
  - Gait disturbance [None]
  - Drug level increased [None]
